FAERS Safety Report 10135746 (Version 2)
Quarter: 2014Q2

REPORT INFORMATION
  Report Type: Report from Study
  Country: NL (occurrence: NL)
  Receive Date: 20140428
  Receipt Date: 20140428
  Transmission Date: 20141212
  Serious: Yes (Death, Hospitalization)
  Sender: FDA-Public Use
  Company Number: PHHO2014NL005798

PATIENT
  Sex: 0

DRUGS (6)
  1. SANDIMMUN [Suspect]
     Indication: STEM CELL TRANSPLANT
     Dosage: 250 MG, UNK
     Route: 042
     Dates: start: 20140310, end: 20140411
  2. MYCOPHENOLIC ACID [Suspect]
     Indication: STEM CELL TRANSPLANT
     Dosage: UNK
     Dates: start: 20140411
  3. CYCLOPHOSPHAMIDE [Concomitant]
     Indication: STEM CELL TRANSPLANT
     Dosage: 2200 MG, UNK
     Route: 042
     Dates: start: 20140227, end: 20140228
  4. CYCLOPHOSPHAMIDE [Concomitant]
     Dosage: 3780 MG, UNK
     Route: 042
     Dates: start: 20140308, end: 20140309
  5. IRRADIATION [Concomitant]
     Indication: STEM CELL TRANSPLANT
     Dosage: 2 GY, UNK
     Dates: start: 20140304, end: 20140304
  6. FLUDARABINE [Concomitant]
     Indication: STEM CELL TRANSPLANT
     Dosage: 60 MG, UNK
     Route: 042
     Dates: start: 20140227, end: 20140303

REACTIONS (2)
  - Blood creatinine increased [Recovered/Resolved]
  - Graft versus host disease [Fatal]
